FAERS Safety Report 8838827 (Version 1)
Quarter: 2012Q4

REPORT INFORMATION
  Report Type: 
  Country: FR (occurrence: FR)
  Receive Date: 20121014
  Receipt Date: 20121014
  Transmission Date: 20130627
  Serious: Yes (Hospitalization)
  Sender: FDA-Public Use
  Company Number: FR-TEVA-363613ISR

PATIENT
  Age: 23 Year
  Sex: Female

DRUGS (2)
  1. ANTADYS [Suspect]
     Indication: DYSURIA
     Dosage: Self-medication
     Route: 048
     Dates: start: 20120625, end: 20120703
  2. NIFLURIL [Suspect]
     Indication: DYSURIA
     Dosage: Self-medication
     Route: 048
     Dates: start: 20120625, end: 20120703

REACTIONS (1)
  - Renal abscess [Recovering/Resolving]
